FAERS Safety Report 11201638 (Version 1)
Quarter: 2015Q2

REPORT INFORMATION
  Report Type: Spontaneous
  Country: RO (occurrence: RO)
  Receive Date: 20150619
  Receipt Date: 20150619
  Transmission Date: 20150821
  Serious: Yes (Hospitalization)
  Sender: FDA-Public Use
  Company Number: PHHY2015RO070077

PATIENT
  Age: 48 Year
  Sex: Female

DRUGS (1)
  1. CARBAMAZEPINE. [Suspect]
     Active Substance: CARBAMAZEPINE
     Indication: PRODUCT USED FOR UNKNOWN INDICATION
     Dosage: 40 DF, UNK
     Route: 065

REACTIONS (12)
  - Anticonvulsant drug level increased [Recovered/Resolved]
  - Hyperammonaemia [Recovered/Resolved]
  - Toxicity to various agents [Recovered/Resolved]
  - Toxic encephalopathy [Recovered/Resolved]
  - Heart rate increased [Recovered/Resolved]
  - Agitation [Recovered/Resolved]
  - Pupillary disorder [Recovered/Resolved]
  - Polyuria [Recovered/Resolved]
  - Coma [Recovered/Resolved]
  - Hypertension [Recovered/Resolved]
  - Suicide attempt [Recovered/Resolved]
  - Intentional overdose [Unknown]
